FAERS Safety Report 6258348-4 (Version None)
Quarter: 2009Q3

REPORT INFORMATION
  Report Type: 
  Country: None (occurrence: None)
  Receive Date: 20090701
  Receipt Date: 20080624
  Transmission Date: 20100115
  Serious: Yes (Hospitalization)
  Sender: FDA-Public Use
  Company Number: 572359

PATIENT
  Age: 62 Year
  Sex: Female

DRUGS (5)
  1. KLONOPIN [Suspect]
     Indication: PANIC DISORDER
     Dosage: 1 MG 3 PER DAY ORAL
     Route: 048
  2. REGLAN (METOCLOPRAMIDE) UNK [Concomitant]
  3. TRAZODONE (TRAZODONE HYDROCHLORIDE) UNK [Concomitant]
  4. EFFEXOR (VENLAFAXINE HYDROCHLORIDE) UNK [Concomitant]
  5. IDERAL (PROPRANOLOL) UNK [Concomitant]

REACTIONS (5)
  - BALANCE DISORDER [None]
  - BLOOD PRESSURE INCREASED [None]
  - DEPRESSION [None]
  - HEART RATE INCREASED [None]
  - HYPERHIDROSIS [None]
